FAERS Safety Report 9472443 (Version 1)
Quarter: 2013Q3

REPORT INFORMATION
  Report Type: Spontaneous
  Country: US (occurrence: US)
  Receive Date: 20130823
  Receipt Date: 20130823
  Transmission Date: 20140515
  Serious: Yes (Other)
  Sender: FDA-Public Use
  Company Number: US-PFIZER INC-2013243530

PATIENT
  Sex: Female

DRUGS (1)
  1. LYRICA [Suspect]
     Indication: MIGRAINE
     Dosage: UNK

REACTIONS (3)
  - Off label use [Unknown]
  - Precancerous skin lesion [Unknown]
  - Sleep disorder [Unknown]
